FAERS Safety Report 4851117-9 (Version None)
Quarter: 2005Q4

REPORT INFORMATION
  Report Type: 
  Country: None (occurrence: None)
  Receive Date: 20051130
  Receipt Date: 20050823
  Transmission Date: 20060501
  Serious: No
  Sender: FDA-Public Use
  Company Number: FABR-11209

PATIENT
  Age: 34 Year
  Sex: Male
  Weight: 60 kg

DRUGS (2)
  1. FABRAZYME [Suspect]
     Indication: FABRY'S DISEASE
     Dosage: 70 MG Q2WKS IV
     Route: 042
     Dates: start: 20050527
  2. TOREM [Concomitant]

REACTIONS (6)
  - CHILLS [None]
  - INFECTION [None]
  - NAUSEA [None]
  - PYREXIA [None]
  - TACHYCARDIA [None]
  - VOMITING [None]
